FAERS Safety Report 6746157-9 (Version None)
Quarter: 2010Q2

REPORT INFORMATION
  Report Type: 
  Country: None (occurrence: None)
  Receive Date: 20100528
  Receipt Date: 20100129
  Transmission Date: 20101027
  Serious: Yes (Other)
  Sender: FDA-Public Use
  Company Number: US-ASTRAZENECA-2010SE04112

PATIENT
  Sex: Male

DRUGS (1)
  1. LOSEC I.V. [Suspect]
     Indication: GASTRINOMA
     Route: 048
     Dates: start: 20100127

REACTIONS (1)
  - DIARRHOEA [None]
